FAERS Safety Report 4710916-4 (Version None)
Quarter: 2005Q3

REPORT INFORMATION
  Report Type: 
  Country: None (occurrence: None)
  Receive Date: 20050708
  Receipt Date: 20050627
  Transmission Date: 20060218
  Serious: Yes (Hospitalization)
  Sender: FDA-Public Use
  Company Number: GXKR2005GB01281

PATIENT
  Age: 60 Year
  Sex: Male
  Weight: 92 kg

DRUGS (10)
  1. FLUOXETINE [Suspect]
     Indication: SLEEP DISORDER
     Dosage: 20 MG, QD, ORAL
     Route: 048
     Dates: start: 20050517, end: 20050522
  2. FUROSEMIDE [Suspect]
     Dosage: 40 MG, QD, ORAL
     Route: 048
     Dates: end: 20050522
  3. MYCOPHENOLATE MOFETIL (MYCOPHENOLATE MOFETIL) [Concomitant]
  4. PREDNISONE [Concomitant]
  5. DIAZEPAM [Concomitant]
  6. WARFARIN SODIUM [Concomitant]
  7. SOTALOL HCL [Concomitant]
  8. ALLOPURINOL [Concomitant]
  9. DIGOXIN [Concomitant]
  10. SIROLIMUS (SIROLIMUS) [Concomitant]

REACTIONS (3)
  - ASTHENIA [None]
  - COORDINATION ABNORMAL [None]
  - HYPONATRAEMIA [None]
